FAERS Safety Report 11977887 (Version 1)
Quarter: 2016Q1

REPORT INFORMATION
  Report Type: Spontaneous
  Country: US (occurrence: US)
  Receive Date: 20160129
  Receipt Date: 20160129
  Transmission Date: 20160526
  Serious: Yes (Other)
  Sender: FDA-Public Use
  Company Number: US-TEVA-629581USA

PATIENT
  Age: 14 Year
  Sex: Male

DRUGS (6)
  1. ENOXAPARIN [Suspect]
     Active Substance: ENOXAPARIN
     Dosage: 40MG
     Route: 065
  2. VANCOMYCIN [Concomitant]
     Active Substance: VANCOMYCIN
     Indication: SINUSITIS
     Dosage: 3 GRAM DAILY;
     Route: 042
  3. IBUPROFEN. [Concomitant]
     Active Substance: IBUPROFEN
     Indication: INFLUENZA
     Route: 065
  4. MEROPENEM. [Suspect]
     Active Substance: MEROPENEM
     Indication: SINUSITIS
     Dosage: 6 GRAM DAILY;
     Route: 065
  5. AMANTADINE [Concomitant]
     Active Substance: AMANTADINE
     Indication: INFLUENZA
     Route: 065
  6. ENOXAPARIN [Suspect]
     Active Substance: ENOXAPARIN
     Dosage: 60MG; EVENTUALLY THE DOSE WAS DECREASED TO 40MG
     Route: 065

REACTIONS (2)
  - Epistaxis [Recovered/Resolved]
  - Bone marrow failure [Unknown]
